FAERS Safety Report 10009939 (Version 2)
Quarter: 2014Q1

REPORT INFORMATION
  Report Type: Spontaneous
  Country: None (occurrence: US)
  Receive Date: 20140312
  Receipt Date: 20140312
  Transmission Date: 20141002
  Serious: No
  Sender: FDA-Public Use
  Company Number: US-INCYTE CORPORATION-2013IN000472

PATIENT
  Age: 68 Year
  Sex: Female
  Weight: 126 kg

DRUGS (10)
  1. JAKAFI [Suspect]
     Indication: MYELOFIBROSIS
     Dosage: 20 MG, BID
     Route: 048
     Dates: start: 20130104
  2. MOTRIN [Concomitant]
  3. MVI [Concomitant]
  4. ASA [Concomitant]
     Dosage: 81 MG, UNK
  5. TRAZODONE [Concomitant]
  6. LEVOTHYROXINE [Concomitant]
  7. PROVENTIL [Concomitant]
  8. ADVAIR [Concomitant]
  9. SINGULAIR [Concomitant]
  10. ALLEGRA-D [Concomitant]

REACTIONS (4)
  - Abdominal distension [Unknown]
  - Increased appetite [Unknown]
  - Weight increased [Unknown]
  - Arthralgia [Unknown]
